FAERS Safety Report 21765923 (Version 1)
Quarter: 2022Q4

REPORT INFORMATION
  Report Type: Spontaneous
  Country: US (occurrence: None)
  Receive Date: 20221221
  Receipt Date: 20221221
  Transmission Date: 20230113
  Serious: Yes (Other)
  Sender: FDA-Public Use
  Company Number: None

PATIENT
  Age: 28 Year
  Sex: Male
  Weight: 103.5 kg

DRUGS (1)
  1. PROPECIA [Suspect]
     Active Substance: FINASTERIDE
     Dates: start: 20190815, end: 20220915

REACTIONS (3)
  - Erectile dysfunction [None]
  - Libido decreased [None]
  - Depression [None]

NARRATIVE: CASE EVENT DATE: 20191115
